FAERS Safety Report 10378472 (Version 1)
Quarter: 2014Q3

REPORT INFORMATION
  Report Type: Spontaneous
  Country: US (occurrence: US)
  Receive Date: 20140812
  Receipt Date: 20140812
  Transmission Date: 20150326
  Serious: Yes (Other)
  Sender: FDA-Public Use
  Company Number: US-MYLANLABS-2014M1001081

PATIENT

DRUGS (9)
  1. TPA [Interacting]
     Active Substance: ALTEPLASE
     Indication: ISCHAEMIC STROKE
     Dosage: 0.1 MG/KG OVER 1-MINUTE
  2. TPA [Interacting]
     Active Substance: ALTEPLASE
     Dosage: 0.8 MG/KG OVER ONE HOUR
  3. PLAVIX [Concomitant]
     Active Substance: CLOPIDOGREL BISULFATE
     Route: 065
  4. AMLODIPINE [Concomitant]
     Active Substance: AMLODIPINE BESYLATE
     Route: 065
  5. ATORVASTATIN [Concomitant]
     Active Substance: ATORVASTATIN
     Route: 065
  6. LISINOPRIL. [Suspect]
     Active Substance: LISINOPRIL
     Route: 065
  7. HYDROCHLOROTHIAZIDE. [Concomitant]
     Active Substance: HYDROCHLOROTHIAZIDE
     Route: 065
  8. ATENOLOL. [Concomitant]
     Active Substance: ATENOLOL
     Route: 065
  9. DARIFENACIN [Concomitant]
     Active Substance: DARIFENACIN
     Route: 065

REACTIONS (3)
  - Drug interaction [Recovering/Resolving]
  - Epistaxis [Recovering/Resolving]
  - Angioedema [Recovering/Resolving]
